FAERS Safety Report 11933889 (Version 1)
Quarter: 2016Q1

REPORT INFORMATION
  Report Type: Spontaneous
  Country: US (occurrence: US)
  Receive Date: 20160121
  Receipt Date: 20160121
  Transmission Date: 20160526
  Serious: No
  Sender: FDA-Public Use
  Company Number: US-ELI_LILLY_AND_COMPANY-US201512007531

PATIENT
  Age: 85 Year
  Sex: Male
  Weight: 89.8 kg

DRUGS (5)
  1. OMEPRAZOLE SANDOZ                  /00661201/ [Concomitant]
     Active Substance: OMEPRAZOLE
     Indication: BARRETT^S OESOPHAGUS
     Dosage: 60 MG, QD
     Route: 048
     Dates: start: 2007
  2. EFFIENT [Suspect]
     Active Substance: PRASUGREL HYDROCHLORIDE
     Indication: THROMBOSIS PROPHYLAXIS
     Dosage: UNK, UNKNOWN
     Route: 065
     Dates: start: 201508
  3. OMEPRAZOLE. [Concomitant]
     Active Substance: OMEPRAZOLE
     Indication: BARRETT^S OESOPHAGUS
     Dosage: UNK, UNKNOWN
     Route: 065
     Dates: start: 201511
  4. PEPCID AC [Concomitant]
     Active Substance: FAMOTIDINE
     Dosage: UNK, UNKNOWN
     Route: 065
  5. OMEPRAZOLE SANDOZ                  /00661201/ [Concomitant]
     Active Substance: OMEPRAZOLE
     Dosage: 20 MG, QD
     Route: 048
     Dates: start: 201511

REACTIONS (3)
  - Vertigo [Unknown]
  - Tinnitus [Not Recovered/Not Resolved]
  - Ear congestion [Not Recovered/Not Resolved]
